FAERS Safety Report 9222223 (Version 2)
Quarter: 2013Q2

REPORT INFORMATION
  Report Type: Spontaneous
  Country: US (occurrence: None)
  Receive Date: 20130408
  Receipt Date: 20130517
  Transmission Date: 20140414
  Serious: Yes (Death)
  Sender: FDA-Public Use
  Company Number: 2013P1004186

PATIENT
  Age: 27 Year
  Sex: Female

DRUGS (1)
  1. MYORISAN 40 MG [Suspect]
     Dates: start: 20130215

REACTIONS (1)
  - Malaise [None]
